FAERS Safety Report 8085419-2 (Version None)
Quarter: 2012Q1

REPORT INFORMATION
  Report Type: 
  Country: None (occurrence: None)
  Receive Date: 20120128
  Receipt Date: 20110422
  Transmission Date: 20120608
  Serious: Yes (Hospitalization)
  Sender: FDA-Public Use
  Company Number: US-ABBOTT-11P-163-0696598-00

PATIENT
  Sex: Female
  Weight: 120.31 kg

DRUGS (2)
  1. HUMIRA [Suspect]
     Indication: CROHN'S DISEASE
     Dates: start: 20081101, end: 20101225
  2. VITAMIN TAB [Concomitant]
     Indication: VITAMIN SUPPLEMENTATION

REACTIONS (6)
  - FATIGUE [None]
  - ASTHENIA [None]
  - NODULE [None]
  - ARTHRALGIA [None]
  - SPLENOMEGALY [None]
  - CHRONIC MYELOID LEUKAEMIA [None]
